FAERS Safety Report 22215510 (Version 1)
Quarter: 2023Q2

REPORT INFORMATION
  Report Type: Spontaneous
  Country: US (occurrence: US)
  Receive Date: 20230416
  Receipt Date: 20230416
  Transmission Date: 20230722
  Serious: No
  Sender: FDA-Public Use
  Company Number: US-JNJFOC-20190703920

PATIENT
  Sex: Male

DRUGS (1)
  1. ROGAINE [Suspect]
     Active Substance: MINOXIDIL
     Indication: Alopecia
     Dosage: TWICE DAILY FOR 8 TO 10 YEARS ONLY ABOUT 2 YEARS OUTSIDE OF THE DIRECTIONS ON THE TEMPLES AND FRONT.
     Route: 061

REACTIONS (1)
  - Product administered at inappropriate site [Unknown]
